FAERS Safety Report 18570548 (Version 1)
Quarter: 2020Q4

REPORT INFORMATION
  Report Type: Spontaneous
  Country: US (occurrence: US)
  Receive Date: 20201202
  Receipt Date: 20201202
  Transmission Date: 20210114
  Serious: No
  Sender: FDA-Public Use
  Company Number: US-GLENMARK PHARMACEUTICALS-2020GMK050214

PATIENT

DRUGS (1)
  1. COLESEVELAM HYDROCHLORIDE TABLETS [625MG] [Suspect]
     Active Substance: COLESEVELAM HYDROCHLORIDE
     Indication: PRODUCT USED FOR UNKNOWN INDICATION
     Dosage: 2 DOSAGE FORM, BID; START DATE: YEARS
     Route: 048

REACTIONS (1)
  - Product use issue [Unknown]
